FAERS Safety Report 5317543-9 (Version None)
Quarter: 2007Q2

REPORT INFORMATION
  Report Type: 
  Country: None (occurrence: None)
  Receive Date: 20070507
  Receipt Date: 20070426
  Transmission Date: 20071010
  Serious: Yes (Hospitalization)
  Sender: FDA-Public Use
  Company Number: PHEH2007US06462

PATIENT
  Sex: Female

DRUGS (1)
  1. ZELNORM [Suspect]
     Indication: GASTROINTESTINAL MOTILITY DISORDER
     Dosage: 6 MG, QD
     Route: 048
     Dates: start: 20060504, end: 20060801

REACTIONS (5)
  - BLOOD PRESSURE INCREASED [None]
  - CHEST PAIN [None]
  - FATIGUE [None]
  - FEELING ABNORMAL [None]
  - MYOCARDIAL INFARCTION [None]
